FAERS Safety Report 17654372 (Version 2)
Quarter: 2020Q2

REPORT INFORMATION
  Report Type: Report from Study
  Country: IT (occurrence: IT)
  Receive Date: 20200410
  Receipt Date: 20200521
  Transmission Date: 20200713
  Serious: Yes (Hospitalization)
  Sender: FDA-Public Use
  Company Number: IT-GLAXOSMITHKLINE-IT2020058478

PATIENT
  Age: 10 Year
  Sex: Male
  Weight: 20 kg

DRUGS (2)
  1. LAMOTRIGINE. [Suspect]
     Active Substance: LAMOTRIGINE
     Indication: EPILEPSY
     Dosage: 200 MG, QD
     Route: 048
     Dates: start: 20200304, end: 20200305
  2. LEVETIRACETAM. [Concomitant]
     Active Substance: LEVETIRACETAM
     Indication: PRODUCT USED FOR UNKNOWN INDICATION
     Dosage: UNK
     Route: 048
     Dates: start: 20180306, end: 20200306

REACTIONS (3)
  - Medication error [Unknown]
  - Overdose [Unknown]
  - Sopor [Unknown]

NARRATIVE: CASE EVENT DATE: 20200305
